FAERS Safety Report 9711278 (Version 1)
Quarter: 2013Q4

REPORT INFORMATION
  Report Type: Spontaneous
  Country: JP (occurrence: JP)
  Receive Date: 20131126
  Receipt Date: 20131126
  Transmission Date: 20140711
  Serious: Yes (Other)
  Sender: FDA-Public Use
  Company Number: JP-ELI_LILLY_AND_COMPANY-JP201311006782

PATIENT
  Age: 45 Year
  Sex: Female

DRUGS (5)
  1. CYMBALTA [Suspect]
     Indication: DEPRESSION
     Dosage: 20 MG, QD
     Route: 048
     Dates: start: 20131031, end: 20131106
  2. PL GRAN. [Concomitant]
     Indication: NASOPHARYNGITIS
     Dosage: UNK
     Route: 048
     Dates: start: 20131031, end: 20131101
  3. SELENICA-R [Concomitant]
     Indication: SCHIZOPHRENIA
     Dosage: UNK
     Route: 048
     Dates: start: 20131031, end: 20131106
  4. ZYPREXA [Concomitant]
     Indication: SCHIZOPHRENIA
     Dosage: UNK
     Route: 048
     Dates: start: 20131031, end: 20131106
  5. LENDORMIN [Concomitant]
     Dosage: UNK
     Dates: start: 20131031, end: 20131106

REACTIONS (1)
  - Stevens-Johnson syndrome [Recovered/Resolved]
